FAERS Safety Report 12759381 (Version 1)
Quarter: 2016Q3

REPORT INFORMATION
  Report Type: Spontaneous
  Country: US (occurrence: US)
  Receive Date: 20160919
  Receipt Date: 20160919
  Transmission Date: 20161109
  Serious: No
  Sender: FDA-Public Use
  Company Number: US-ASTRAZENECA-2016SE81024

PATIENT
  Sex: Female

DRUGS (4)
  1. BRILINTA [Suspect]
     Active Substance: TICAGRELOR
     Indication: ACUTE CORONARY SYNDROME
     Route: 048
     Dates: start: 20160623
  2. BRILINTA [Suspect]
     Active Substance: TICAGRELOR
     Indication: HAEMODILUTION
     Route: 048
     Dates: start: 20160623
  3. BRILINTA [Suspect]
     Active Substance: TICAGRELOR
     Indication: HAEMODILUTION
     Route: 048
     Dates: start: 20160623
  4. BRILINTA [Suspect]
     Active Substance: TICAGRELOR
     Indication: ACUTE CORONARY SYNDROME
     Route: 048
     Dates: start: 20160623

REACTIONS (9)
  - Vein disorder [Unknown]
  - Vascular compression [Unknown]
  - Oedema peripheral [Unknown]
  - Cardiovascular disorder [Unknown]
  - Fear [Unknown]
  - Peripheral swelling [Unknown]
  - Depressed mood [Unknown]
  - Malaise [Unknown]
  - Confusional state [Unknown]
